FAERS Safety Report 9280361 (Version 4)
Quarter: 2015Q2

REPORT INFORMATION
  Report Type: Report from Study
  Country: US (occurrence: US)
  Receive Date: 20130509
  Receipt Date: 20150504
  Transmission Date: 20150821
  Serious: Yes (Hospitalization)
  Sender: FDA-Public Use
  Company Number: US-ROCHE-1220560

PATIENT
  Age: 56 Year
  Sex: Female
  Weight: 55.2 kg

DRUGS (5)
  1. TRASTUZUMAB [Suspect]
     Active Substance: TRASTUZUMAB
     Indication: METASTASES TO MENINGES
     Route: 037
     Dates: start: 20130423
  2. TRASTUZUMAB [Suspect]
     Active Substance: TRASTUZUMAB
     Route: 037
     Dates: start: 20130426
  3. TRASTUZUMAB [Suspect]
     Active Substance: TRASTUZUMAB
     Route: 037
     Dates: start: 20130514
  4. TRASTUZUMAB [Suspect]
     Active Substance: TRASTUZUMAB
     Route: 037
     Dates: start: 20130430
  5. TRASTUZUMAB [Suspect]
     Active Substance: TRASTUZUMAB
     Route: 037
     Dates: start: 20130510

REACTIONS (8)
  - Headache [Recovered/Resolved]
  - Back pain [Recovered/Resolved]
  - Neck pain [Not Recovered/Not Resolved]
  - Vomiting [Recovered/Resolved]
  - Nausea [Recovered/Resolved]
  - Enterocolitis infectious [Recovered/Resolved]
  - Diarrhoea [Recovered/Resolved]
  - Pain in extremity [Recovered/Resolved]

NARRATIVE: CASE EVENT DATE: 20130423
